FAERS Safety Report 9060818 (Version 1)
Quarter: 2013Q1

REPORT INFORMATION
  Report Type: Spontaneous
  Country: US (occurrence: US)
  Receive Date: 20130204
  Receipt Date: 20130204
  Transmission Date: 20140127
  Serious: No
  Sender: FDA-Public Use
  Company Number: US-009507513-1301USA014511

PATIENT
  Age: 70 Year
  Sex: Female

DRUGS (2)
  1. JANUVIA [Suspect]
     Indication: DIABETES MELLITUS
     Dosage: 100 MG, QD
     Route: 048
  2. JANUVIA [Suspect]
     Dosage: 200 MG, ONCE
     Route: 048
     Dates: start: 20130130

REACTIONS (5)
  - Strabismus [Not Recovered/Not Resolved]
  - Malaise [Not Recovered/Not Resolved]
  - Hot flush [Not Recovered/Not Resolved]
  - Abnormal dreams [Not Recovered/Not Resolved]
  - Accidental overdose [Unknown]
